FAERS Safety Report 23782286 (Version 1)
Quarter: 2024Q2

REPORT INFORMATION
  Report Type: Spontaneous
  Country: US (occurrence: None)
  Receive Date: 20240424
  Receipt Date: 20240424
  Transmission Date: 20240716
  Serious: No
  Sender: FDA-Public Use
  Company Number: None

PATIENT
  Age: 44 Year
  Sex: Female

DRUGS (3)
  1. AMBRISENTAN [Suspect]
     Active Substance: AMBRISENTAN
     Indication: Pulmonary hypertension
     Dosage: 10MG QD ORAL
     Route: 048
     Dates: start: 20210405
  2. REMODULIN [Suspect]
     Active Substance: TREPROSTINIL
  3. TADALAFIL [Suspect]
     Active Substance: TADALAFIL

REACTIONS (8)
  - Dizziness [None]
  - Asthenia [None]
  - Chest discomfort [None]
  - Diarrhoea [None]
  - Flushing [None]
  - Malaise [None]
  - Myalgia [None]
  - Palpitations [None]

NARRATIVE: CASE EVENT DATE: 20240402
